FAERS Safety Report 11413559 (Version 2)
Quarter: 2015Q4

REPORT INFORMATION
  Report Type: Spontaneous
  Country: IT (occurrence: IT)
  Receive Date: 20150824
  Receipt Date: 20151211
  Transmission Date: 20160304
  Serious: Yes (Hospitalization)
  Sender: FDA-Public Use
  Company Number: IT-BRISTOL-MYERS SQUIBB COMPANY-BMS-2015-031799

PATIENT
  Age: 64 Year
  Sex: Male

DRUGS (4)
  1. MICROSER [Interacting]
     Active Substance: BETAHISTINE HYDROCHLORIDE
     Indication: MENIERE^S DISEASE
     Dosage: 32 MG, QD
     Route: 048
     Dates: start: 20150423, end: 20150428
  2. CARVEDILOL. [Concomitant]
     Active Substance: CARVEDILOL
     Indication: PRODUCT USED FOR UNKNOWN INDICATION
     Dosage: 50 MG, UNK
     Route: 065
  3. COUMADIN [Suspect]
     Active Substance: WARFARIN SODIUM
     Indication: CEREBROVASCULAR ACCIDENT PROPHYLAXIS
     Dosage: 27.5 MG, QWK.WEEKLY DOSAGE REDUCTION
     Route: 048
     Dates: start: 20081016, end: 20150428
  4. FLECAINIDE ACETATE. [Concomitant]
     Active Substance: FLECAINIDE ACETATE
     Indication: PRODUCT USED FOR UNKNOWN INDICATION
     Dosage: 200 MG, UNK
     Route: 065

REACTIONS (3)
  - International normalised ratio increased [Recovered/Resolved]
  - Amnesia [Unknown]
  - Drug interaction [Unknown]

NARRATIVE: CASE EVENT DATE: 20150409
